FAERS Safety Report 6613292-5 (Version None)
Quarter: 2010Q1

REPORT INFORMATION
  Report Type: 
  Country: None (occurrence: None)
  Receive Date: 20100304
  Receipt Date: 20100219
  Transmission Date: 20100710
  Serious: Yes (Other)
  Sender: FDA-Public Use
  Company Number: PHEH2010US02611

PATIENT
  Sex: Female
  Weight: 54.422 kg

DRUGS (3)
  1. RECLAST [Suspect]
     Indication: OSTEOPOROSIS
     Dosage: 5 MG, ONCE/SINGLE
     Route: 042
     Dates: start: 20100219
  2. VALIUM [Concomitant]
     Dosage: 5 MG, PRN
     Route: 065
  3. FLONASE [Concomitant]
     Dosage: 50 MCG, 2 INHALATIONS
     Route: 045

REACTIONS (5)
  - BLOOD PRESSURE INCREASED [None]
  - BLOOD SODIUM DECREASED [None]
  - DIZZINESS [None]
  - HEART RATE DECREASED [None]
  - HYPOTENSION [None]
